FAERS Safety Report 5408034-5 (Version None)
Quarter: 2007Q3

REPORT INFORMATION
  Report Type: 
  Country: None (occurrence: None)
  Receive Date: 20070808
  Receipt Date: 20070803
  Transmission Date: 20080115
  Serious: Yes (Hospitalization, Other)
  Sender: FDA-Public Use
  Company Number: PHNU2007DE02742

PATIENT
  Sex: Male

DRUGS (2)
  1. EXFORGE [Suspect]
     Indication: HYPERTENSION
     Dosage: 5/160 MG
     Dates: start: 20070605, end: 20070608
  2. EXFORGE [Suspect]
     Dosage: 10 MG/ 160 MG QD
     Dates: start: 20070608

REACTIONS (3)
  - ATRIAL FIBRILLATION [None]
  - TACHYARRHYTHMIA [None]
  - THERAPY RESPONDER [None]
